FAERS Safety Report 7621656-6 (Version None)
Quarter: 2011Q3

REPORT INFORMATION
  Report Type: 
  Country: None (occurrence: None)
  Receive Date: 20110719
  Receipt Date: 20110706
  Transmission Date: 20111222
  Serious: Yes (Other)
  Sender: FDA-Public Use
  Company Number: CA-GENENTECH-293974

PATIENT
  Sex: Female
  Weight: 86 kg

DRUGS (11)
  1. XOLAIR [Suspect]
     Dosage: 150 MG, 1/MONTH
     Route: 058
     Dates: start: 20091028
  2. SYMBICORT [Concomitant]
     Indication: PRODUCT USED FOR UNKNOWN INDICATION
  3. SPIRIVA [Concomitant]
     Indication: PRODUCT USED FOR UNKNOWN INDICATION
  4. XOLAIR [Suspect]
     Dosage: 150 MG, 1/MONTH
     Dates: start: 20090708
  5. XOLAIR [Suspect]
     Dosage: 150 MG, 1/MONTH
     Route: 058
     Dates: start: 20100524
  6. SINGULAIR [Concomitant]
     Indication: PRODUCT USED FOR UNKNOWN INDICATION
  7. XOLAIR [Suspect]
     Dosage: 150 MG, 1/MONTH
     Route: 058
     Dates: start: 20091126
  8. ALVESCO [Concomitant]
     Indication: PRODUCT USED FOR UNKNOWN INDICATION
  9. VENTOLIN HFA [Concomitant]
     Indication: PRODUCT USED FOR UNKNOWN INDICATION
  10. XOLAIR [Suspect]
     Indication: ASTHMA
     Dosage: 150 MG, 1/MONTH
     Route: 058
     Dates: start: 20090610
  11. XOLAIR [Suspect]
     Dosage: 150 MG, 1/MONTH
     Dates: start: 20090805

REACTIONS (11)
  - PNEUMONIA [None]
  - DYSPNOEA EXERTIONAL [None]
  - PARAESTHESIA [None]
  - INSOMNIA [None]
  - COUGH [None]
  - INJECTION SITE HAEMATOMA [None]
  - FATIGUE [None]
  - EAR DISCOMFORT [None]
  - PRODUCTIVE COUGH [None]
  - WHEEZING [None]
  - PULMONARY CONGESTION [None]
